FAERS Safety Report 9799533 (Version 1)
Quarter: 2014Q1

REPORT INFORMATION
  Report Type: Spontaneous
  Country: DE (occurrence: DE)
  Receive Date: 20140106
  Receipt Date: 20140106
  Transmission Date: 20141002
  Serious: Yes (Life-Threatening, Hospitalization, Disabling)
  Sender: FDA-Public Use
  Company Number: DE-B.I. PHARMACEUTICALS,INC./RIDGEFIELD-2014-BI-00388DE

PATIENT
  Age: 88 Year
  Sex: Female
  Weight: 69 kg

DRUGS (3)
  1. PRADAXA [Suspect]
     Indication: ATRIAL FIBRILLATION
     Dosage: 220 MG
     Route: 048
     Dates: start: 201208, end: 20130625
  2. METOPROLOL [Concomitant]
     Indication: PRODUCT USED FOR UNKNOWN INDICATION
     Dosage: 190 MG
     Route: 048
  3. NOVODIGAL MITE [Concomitant]
     Indication: PRODUCT USED FOR UNKNOWN INDICATION
     Dosage: 1 ANZ

REACTIONS (4)
  - Somnolence [Recovered/Resolved]
  - Muscular weakness [Recovered/Resolved]
  - Hallucination [Recovered/Resolved]
  - Hypercalcaemia [Recovered/Resolved]
